FAERS Safety Report 6859342-2 (Version None)
Quarter: 2010Q3

REPORT INFORMATION
  Report Type: 
  Country: None (occurrence: None)
  Receive Date: 20100719
  Receipt Date: 20080325
  Transmission Date: 20110219
  Serious: No
  Sender: FDA-Public Use
  Company Number: US-PFIZER INC-2008018197

PATIENT
  Sex: Male
  Weight: 88.5 kg

DRUGS (1)
  1. CHANTIX [Suspect]
     Indication: SMOKING CESSATION THERAPY
     Route: 048
     Dates: start: 20080211, end: 20080220

REACTIONS (3)
  - ARTHRALGIA [None]
  - INSOMNIA [None]
  - TINNITUS [None]
